FAERS Safety Report 9208775 (Version 1)
Quarter: 2013Q2

REPORT INFORMATION
  Report Type: Spontaneous
  Country: US (occurrence: US)
  Receive Date: 20130404
  Receipt Date: 20130404
  Transmission Date: 20140414
  Serious: No
  Sender: FDA-Public Use
  Company Number: US-PFIZER INC-2013105724

PATIENT
  Age: 54 Year
  Sex: Female

DRUGS (1)
  1. ZOLOFT [Suspect]
     Dosage: 100MG DAILY
     Route: 048

REACTIONS (1)
  - Drug screen false positive [Unknown]
